FAERS Safety Report 9204271 (Version 1)
Quarter: 2013Q1

REPORT INFORMATION
  Report Type: Spontaneous
  Country: US (occurrence: None)
  Receive Date: 20120709
  Receipt Date: 20120709
  Transmission Date: 20140127
  Serious: No
  Sender: FDA-Public Use
  Company Number: 2012HGS-003377

PATIENT
  Age: 51 Year
  Sex: Female

DRUGS (6)
  1. BENLYSTA [Suspect]
     Dosage: 1 IN 28 D
     Route: 041
     Dates: start: 20120222
  2. PLAQUENIL (HYDROCHLOROQUINE SULFATE) (HYDROCHLOROQUINE SULFATE) [Concomitant]
  3. PREDNISONE (PREDNISONE) (PREDNISONE) [Concomitant]
  4. DILANTIN (PHENYTOIN SODIUM) (PHENYTOIN SODIUM) [Concomitant]
  5. SYNTHROID (LEVOTHYROXINIE SODIUM) (LEVOTHYROXONE SODIUM) [Concomitant]
  6. DEXILANT (DEXLANSOPRAZOLE) (DEXLANSOPRAZOLE) [Concomitant]

REACTIONS (2)
  - Asthenia [None]
  - Fatigue [None]
